FAERS Safety Report 4635940-1 (Version None)
Quarter: 2005Q2

REPORT INFORMATION
  Report Type: 
  Country: None (occurrence: None)
  Receive Date: 20050413
  Receipt Date: 20050406
  Transmission Date: 20051028
  Serious: Yes (Death)
  Sender: FDA-Public Use
  Company Number: 2005US000436

PATIENT
  Age: 17 Year
  Sex: Male

DRUGS (2)
  1. PROGRAF [Suspect]
     Indication: PROPHYLAXIS AGAINST TRANSPLANT REJECTION
     Dates: start: 20020101
  2. PREDNISONE [Concomitant]

REACTIONS (4)
  - BRAIN DEATH [None]
  - CEREBRAL TOXOPLASMOSIS [None]
  - GRAFT VERSUS HOST DISEASE [None]
  - TOXIC INDUCED ENCEPHALOPATHY [None]
